FAERS Safety Report 18586153 (Version 2)
Quarter: 2021Q1

REPORT INFORMATION
  Report Type: Other
  Country: CN (occurrence: CN)
  Receive Date: 20201207
  Receipt Date: 20210315
  Transmission Date: 20210419
  Serious: Yes (Other)
  Sender: FDA-Public Use
  Company Number: CN-ROCHE-2699343

PATIENT

DRUGS (4)
  1. RITUXIMAB. [Suspect]
     Active Substance: RITUXIMAB
     Indication: CENTRAL NERVOUS SYSTEM LYMPHOMA
     Dosage: DAY 0, DISSOLVED IN 0.9% NS AT A CONCENTRATION OF 1 MG/ML, ADMINISTERED VIA A MICROPUMP FOR 4 HOURS.
     Route: 041
  2. FOTEMUSTINE [Suspect]
     Active Substance: FOTEMUSTINE
     Indication: CENTRAL NERVOUS SYSTEM LYMPHOMA
     Dosage: DAY 1, DISSOLVED IN 250 ML 5% GS, INTRAVENOUS DRIP, PROTECTED FROM LIGHT.
     Route: 042
  3. DEXAMETHASONE. [Suspect]
     Active Substance: DEXAMETHASONE
     Indication: CENTRAL NERVOUS SYSTEM LYMPHOMA
     Dosage: 40 MG DAY 1 ~ 5, DISSOLVED IN 100 ML 5% GS, INTRAVENOUS DRIP
     Route: 042
  4. PEMETREXED. [Suspect]
     Active Substance: PEMETREXED
     Indication: CENTRAL NERVOUS SYSTEM LYMPHOMA
     Dosage: DAY 1, DISSOLVED IN 100 ML 0.9% NS, INTRAVENOUS INJECTION.
     Route: 042

REACTIONS (5)
  - Leukopenia [Unknown]
  - Anaemia [Unknown]
  - Thrombocytopenia [Unknown]
  - Infection [Unknown]
  - Hepatic function abnormal [Unknown]
